FAERS Safety Report 17244045 (Version 1)
Quarter: 2020Q1

REPORT INFORMATION
  Report Type: Spontaneous
  Country: TR (occurrence: TR)
  Receive Date: 20200107
  Receipt Date: 20200107
  Transmission Date: 20200409
  Serious: Yes (Other)
  Sender: FDA-Public Use
  Company Number: NVSC2020TR001734

PATIENT
  Age: 41 Year
  Sex: Male

DRUGS (1)
  1. TEGRETOL XR [Suspect]
     Active Substance: CARBAMAZEPINE
     Indication: EPILEPSY
     Dosage: 200 MG, BID
     Route: 065

REACTIONS (3)
  - Loss of consciousness [Unknown]
  - Nervousness [Unknown]
  - Malaise [Unknown]
